FAERS Safety Report 8380996-6 (Version None)
Quarter: 2012Q2

REPORT INFORMATION
  Report Type: 
  Country: None (occurrence: None)
  Receive Date: 20120515
  Receipt Date: 20120504
  Transmission Date: 20120825
  Serious: Yes (Hospitalization)
  Sender: FDA-Public Use
  Company Number: 2012032244

PATIENT
  Age: 67 Year
  Sex: Male

DRUGS (5)
  1. METFORMIN HCL [Concomitant]
  2. PRIVIGEN [Suspect]
     Indication: RESPIRATORY TRACT INFECTION
     Dosage: 20 G, INFUSION RATE 2-3 ML/MIN, INTRAVENOUS (NOT OTHERWISE SPECIFIED)
     Route: 042
     Dates: start: 20120228, end: 20120228
  3. PRIVIGEN [Suspect]
     Indication: IMMUNODEFICIENCY
     Dosage: 20 G, INFUSION RATE 2-3 ML/MIN, INTRAVENOUS (NOT OTHERWISE SPECIFIED)
     Route: 042
     Dates: start: 20120228, end: 20120228
  4. ACC AKUT (ACETYLCYSTEINE) [Concomitant]
  5. ROXITHROMYCIN (ROXITHROMYCIN) [Concomitant]

REACTIONS (4)
  - CHILLS [None]
  - PNEUMONIA [None]
  - DYSPNOEA [None]
  - PERIPHERAL VASCULAR DISORDER [None]
